FAERS Safety Report 8033043-X (Version None)
Quarter: 2012Q1

REPORT INFORMATION
  Report Type: 
  Country: None (occurrence: None)
  Receive Date: 20120110
  Receipt Date: 20120104
  Transmission Date: 20120608
  Serious: Yes (Hospitalization)
  Sender: FDA-Public Use
  Company Number: IT-PFIZER INC-2011311516

PATIENT
  Age: 79 Year
  Sex: Male

DRUGS (3)
  1. LUVION [Suspect]
     Indication: CARDIAC FAILURE
     Dosage: 50 MG, DAILY
     Route: 048
     Dates: start: 20111101, end: 20111211
  2. LASIX [Suspect]
     Indication: CARDIAC FAILURE
     Dosage: 50 MG, 1X/DAY
     Route: 048
     Dates: start: 20111101, end: 20111211
  3. RAMIPRIL [Suspect]
     Dosage: 5 MG, DAILY
     Route: 048
     Dates: start: 20111101, end: 20111211

REACTIONS (3)
  - HYPERKALAEMIA [None]
  - METABOLIC ALKALOSIS [None]
  - HYPONATRAEMIA [None]
